FAERS Safety Report 14324383 (Version 2)
Quarter: 2018Q2

REPORT INFORMATION
  Report Type: Spontaneous
  Country: JP (occurrence: JP)
  Receive Date: 20171226
  Receipt Date: 20180503
  Transmission Date: 20180711
  Serious: Yes (Death, Hospitalization)
  Sender: FDA-Public Use
  Company Number: JP-DSJP-DSJ-2017-158989

PATIENT

DRUGS (10)
  1. MAGMITT [Concomitant]
     Active Substance: MAGNESIUM OXIDE
     Indication: CONSTIPATION
     Dosage: 250 MG, TID
     Route: 048
  2. GEMZAR [Concomitant]
     Active Substance: GEMCITABINE HYDROCHLORIDE
     Dosage: UNK, 10 TIMES
     Route: 065
     Dates: end: 20171129
  3. CRESTOR [Concomitant]
     Active Substance: ROSUVASTATIN CALCIUM
     Indication: DYSLIPIDAEMIA
     Dosage: 2.5 MG, QD
     Route: 048
     Dates: start: 20171208
  4. LIXIANA TABLETS [Suspect]
     Active Substance: EDOXABAN TOSYLATE
     Indication: ATRIAL FIBRILLATION
     Dosage: 30 MG, QD
     Route: 048
     Dates: start: 20171208, end: 20171215
  5. AMLODIPINE                         /00972402/ [Concomitant]
     Active Substance: AMLODIPINE BESYLATE
     Indication: HYPERTENSION
     Dosage: 5 MG, QD
     Route: 048
  6. CELECOX [Concomitant]
     Active Substance: CELECOXIB
     Indication: BACK PAIN
     Dosage: 200 MG, BID
     Route: 048
  7. FENTANYL. [Concomitant]
     Active Substance: FENTANYL
     Indication: PANCREATIC CARCINOMA
     Dosage: 6.3 MG, QD
     Route: 050
     Dates: start: 20170927
  8. ALOSENN                            /02118001/ [Concomitant]
     Active Substance: SENNA LEAF
     Indication: CONSTIPATION
     Dosage: 0.5 G, QD
     Route: 048
  9. GASOAL [Concomitant]
     Indication: CONSTIPATION
     Dosage: 80 MG, TID
     Route: 048
  10. TELMISARTAN. [Concomitant]
     Active Substance: TELMISARTAN
     Indication: HYPERTENSION
     Dosage: 20 MG, QD
     Route: 048

REACTIONS (2)
  - Cerebral artery embolism [Fatal]
  - Off label use [Unknown]

NARRATIVE: CASE EVENT DATE: 20171215
